FAERS Safety Report 9682483 (Version 1)
Quarter: 2013Q4

REPORT INFORMATION
  Report Type: Report from Study
  Country: AU (occurrence: AU)
  Receive Date: 20131112
  Receipt Date: 20131112
  Transmission Date: 20140711
  Serious: Yes (Other)
  Sender: FDA-Public Use
  Company Number: AU-JNJFOC-20131102803

PATIENT
  Sex: Female
  Weight: 69 kg

DRUGS (3)
  1. STELARA [Suspect]
     Indication: PSORIASIS
     Dosage: VIAL 45 MG 0.5 ML
     Route: 058
  2. STELARA [Suspect]
     Indication: PSORIATIC ARTHROPATHY
     Dosage: VIAL 45 MG 0.5 ML
     Route: 058
  3. STELARA [Suspect]
     Indication: PSORIASIS
     Dosage: VIAL 45 MG 0.5 ML
     Route: 058

REACTIONS (2)
  - Skin cancer [Unknown]
  - Psoriasis [Unknown]
